FAERS Safety Report 4337625-8 (Version None)
Quarter: 2004Q2

REPORT INFORMATION
  Report Type: 
  Country: None (occurrence: None)
  Receive Date: 20040413
  Receipt Date: 20031208
  Transmission Date: 20050107
  Serious: No
  Sender: FDA-Public Use
  Company Number: US-GLAXOSMITHKLINE-A0442331A

PATIENT
  Age: 17 Year
  Sex: Female

DRUGS (1)
  1. DEXEDRINE [Suspect]
     Indication: ATTENTION DEFICIT/HYPERACTIVITY DISORDER
     Dosage: 15MG TWICE PER DAY
     Route: 048
     Dates: start: 19920101

REACTIONS (1)
  - DRUG EXPOSURE DURING PREGNANCY [None]
